FAERS Safety Report 5019818-X (Version None)
Quarter: 2006Q2

REPORT INFORMATION
  Report Type: 
  Country: None (occurrence: None)
  Receive Date: 20060607
  Receipt Date: 20060531
  Transmission Date: 20061013
  Serious: Yes (Hospitalization)
  Sender: FDA-Public Use
  Company Number: FR-JNJFOC-20060600043

PATIENT
  Age: 33 Year
  Sex: Male
  Weight: 90 kg

DRUGS (7)
  1. RISPERDAL [Suspect]
     Indication: AGGRESSION
     Route: 048
  2. RISPERDAL [Suspect]
     Indication: SCHIZOTYPAL PERSONALITY DISORDER
     Route: 048
  3. LOXAPAC [Suspect]
     Indication: DRUG USE FOR UNKNOWN INDICATION
  4. VALIUM [Concomitant]
  5. EQUANIL [Concomitant]
  6. TILDIEM [Concomitant]
  7. PARKINANE [Concomitant]

REACTIONS (3)
  - BLOOD CREATINE PHOSPHOKINASE INCREASED [None]
  - MYALGIA [None]
  - PROTEINURIA [None]
